FAERS Safety Report 6501374-8 (Version None)
Quarter: 2009Q4

REPORT INFORMATION
  Report Type: 
  Country: None (occurrence: None)
  Receive Date: 20091127
  Receipt Date: 20090306
  Transmission Date: 20100525
  Serious: Yes (Other)
  Sender: FDA-Public Use
  Company Number: WAES 0705USA02645

PATIENT
  Age: 67 Year
  Sex: Female

DRUGS (7)
  1. FOSAMAX [Suspect]
     Indication: OSTEOPENIA
     Dosage: 5 MG/DAILY/PO;10 MG/DAILY/PO;70 MG/WKY/PO
     Route: 048
     Dates: start: 20000505, end: 20010822
  2. FOSAMAX [Suspect]
     Indication: OSTEOPOROSIS
     Dosage: 5 MG/DAILY/PO;10 MG/DAILY/PO;70 MG/WKY/PO
     Route: 048
     Dates: start: 20000505, end: 20010822
  3. FOSAMAX [Suspect]
     Indication: OSTEOPENIA
     Dosage: 5 MG/DAILY/PO;10 MG/DAILY/PO;70 MG/WKY/PO
     Route: 048
     Dates: start: 20010822, end: 20060226
  4. FOSAMAX [Suspect]
     Indication: OSTEOPOROSIS
     Dosage: 5 MG/DAILY/PO;10 MG/DAILY/PO;70 MG/WKY/PO
     Route: 048
     Dates: start: 20010822, end: 20060226
  5. FOSAMAX [Suspect]
     Indication: OSTEOPENIA
     Dosage: 5 MG/DAILY/PO;10 MG/DAILY/PO;70 MG/WKY/PO
     Route: 048
     Dates: start: 19990225
  6. FOSAMAX [Suspect]
     Indication: OSTEOPOROSIS
     Dosage: 5 MG/DAILY/PO;10 MG/DAILY/PO;70 MG/WKY/PO
     Route: 048
     Dates: start: 19990225
  7. LIPITOR [Concomitant]

REACTIONS (4)
  - HAEMATURIA [None]
  - HYPERTENSION [None]
  - OSTEONECROSIS [None]
  - RECTAL HAEMORRHAGE [None]
